FAERS Safety Report 8409614-5 (Version None)
Quarter: 2012Q2

REPORT INFORMATION
  Report Type: 
  Country: None (occurrence: None)
  Receive Date: 20120531
  Receipt Date: 20120531
  Transmission Date: 20120825
  Serious: Yes (Hospitalization)
  Sender: FDA-Public Use
  Company Number: None

PATIENT
  Age: 3 Year
  Sex: Male
  Weight: 18.3 kg

DRUGS (3)
  1. ACETAMINOPHEN [Suspect]
     Indication: PYREXIA
     Dates: start: 20120522
  2. ACETAMINOPHEN [Suspect]
     Indication: RHINITIS ALLERGIC
     Dates: start: 20120522
  3. ACETAMINOPHEN [Suspect]
     Indication: PAIN
     Dates: start: 20120522

REACTIONS (2)
  - INCORRECT DOSE ADMINISTERED [None]
  - PRODUCT DOSAGE FORM CONFUSION [None]
